FAERS Safety Report 9893461 (Version 1)
Quarter: 2014Q1

REPORT INFORMATION
  Report Type: Spontaneous
  Country: US (occurrence: US)
  Receive Date: 20140213
  Receipt Date: 20140213
  Transmission Date: 20141002
  Serious: Yes (Other)
  Sender: FDA-Public Use
  Company Number: US-ASTRAZENECA-2014SE08503

PATIENT
  Age: 82 Year
  Sex: Female

DRUGS (4)
  1. BRILINTA [Suspect]
     Indication: ACUTE MYOCARDIAL INFARCTION
     Dosage: 180 MG LOADING DOSE
     Route: 048
     Dates: start: 20140204
  2. BRILINTA [Suspect]
     Indication: CORONARY ARTERIAL STENT INSERTION
     Dosage: 180 MG LOADING DOSE
     Route: 048
     Dates: start: 20140204
  3. BRILINTA [Suspect]
     Indication: ACUTE MYOCARDIAL INFARCTION
     Route: 048
     Dates: start: 20140204
  4. BRILINTA [Suspect]
     Indication: CORONARY ARTERIAL STENT INSERTION
     Route: 048
     Dates: start: 20140204

REACTIONS (1)
  - Gastrointestinal haemorrhage [Unknown]
